FAERS Safety Report 20495520 (Version 1)
Quarter: 2022Q1

REPORT INFORMATION
  Report Type: Report from Study
  Country: CO (occurrence: CO)
  Receive Date: 20220221
  Receipt Date: 20220221
  Transmission Date: 20220423
  Serious: Yes (Other)
  Sender: FDA-Public Use
  Company Number: CO-UCBSA-2022008721

PATIENT
  Age: 68 Year
  Sex: Male

DRUGS (3)
  1. ROTIGOTINE [Suspect]
     Active Substance: ROTIGOTINE
     Indication: Parkinson^s disease
     Dosage: 8 MILLIGRAM, ONCE DAILY (QD)
     Route: 062
     Dates: start: 20190829, end: 20220122
  2. CARBIDOPA\LEVODOPA [Concomitant]
     Active Substance: CARBIDOPA\LEVODOPA
     Indication: Parkinson^s disease
     Dosage: 25/250 MG
     Route: 048
  3. AMANTADINA [AMANTADINE] [Concomitant]
     Indication: Parkinson^s disease
     Dosage: 100 MILLIGRAM, ONCE DAILY (QD)
     Route: 048

REACTIONS (1)
  - Hemiplegia [Recovered/Resolved]

NARRATIVE: CASE EVENT DATE: 20211222
